FAERS Safety Report 25670145 (Version 1)
Quarter: 2025Q3

REPORT INFORMATION
  Report Type: Spontaneous
  Country: EU (occurrence: EU)
  Receive Date: 20250812
  Receipt Date: 20250812
  Transmission Date: 20251020
  Serious: Yes (Hospitalization, Other)
  Sender: ACCORD
  Company Number: EU-Accord-499269

PATIENT
  Age: 76 Year
  Sex: Female

DRUGS (8)
  1. OLMESARTAN [Suspect]
     Active Substance: OLMESARTAN
     Indication: Atrial fibrillation
  2. BISOPROLOL [Concomitant]
     Active Substance: BISOPROLOL
     Indication: Atrial fibrillation
  3. APIXABAN [Concomitant]
     Active Substance: APIXABAN
     Indication: Atrial fibrillation
  4. DIGOXIN [Concomitant]
     Active Substance: DIGOXIN
     Indication: Atrial fibrillation
  5. OLMESARTAN [Suspect]
     Active Substance: OLMESARTAN
     Indication: Hypertension
  6. BISOPROLOL [Concomitant]
     Active Substance: BISOPROLOL
     Indication: Hypertension
  7. APIXABAN [Concomitant]
     Active Substance: APIXABAN
     Indication: Hypertension
  8. DIGOXIN [Concomitant]
     Active Substance: DIGOXIN
     Indication: Hypertension

REACTIONS (2)
  - Sprue-like enteropathy [Recovered/Resolved]
  - Chronic kidney disease [Not Recovered/Not Resolved]
